FAERS Safety Report 23111919 (Version 1)
Quarter: 2023Q4

REPORT INFORMATION
  Report Type: Spontaneous
  Country: US (occurrence: None)
  Receive Date: 20231025
  Receipt Date: 20231025
  Transmission Date: 20240109
  Serious: Yes (Life-Threatening)
  Sender: FDA-Public Use
  Company Number: None

PATIENT
  Age: 66 Year
  Sex: Female
  Weight: 116.12 kg

DRUGS (1)
  1. DOFETILIDE [Suspect]
     Active Substance: DOFETILIDE

REACTIONS (4)
  - Torsade de pointes [None]
  - Therapy change [None]
  - Loss of consciousness [None]
  - Unresponsive to stimuli [None]

NARRATIVE: CASE EVENT DATE: 20231012
